FAERS Safety Report 8440487-0 (Version None)
Quarter: 2012Q2

REPORT INFORMATION
  Report Type: 
  Country: None (occurrence: None)
  Receive Date: 20120615
  Receipt Date: 20120608
  Transmission Date: 20120825
  Serious: Yes (Life-Threatening)
  Sender: FDA-Public Use
  Company Number: FR-GLAXOSMITHKLINE-B0806641A

PATIENT
  Age: 44 Year
  Sex: Female

DRUGS (1)
  1. LAMICTAL [Suspect]
     Indication: EPILEPSY
     Dosage: 50MG PER DAY
     Route: 048
     Dates: start: 20120317, end: 20120404

REACTIONS (8)
  - RASH PUSTULAR [None]
  - MUCOSAL EROSION [None]
  - INCORRECT DOSE ADMINISTERED [None]
  - RASH MACULO-PAPULAR [None]
  - GENITAL EROSION [None]
  - TOXIC EPIDERMAL NECROLYSIS [None]
  - OESOPHAGEAL STENOSIS [None]
  - APHAGIA [None]
